FAERS Safety Report 5740797-1 (Version None)
Quarter: 2008Q2

REPORT INFORMATION
  Report Type: 
  Country: None (occurrence: None)
  Receive Date: 20080516
  Receipt Date: 20080508
  Transmission Date: 20081010
  Serious: Yes (Other)
  Sender: FDA-Public Use
  Company Number: BR-PFIZER INC-2007104599

PATIENT
  Sex: Female

DRUGS (7)
  1. FRONTAL XR [Suspect]
  2. ROHYPNOL [Concomitant]
  3. SIMVASTATIN [Concomitant]
  4. FLUOXETINE [Concomitant]
  5. CARDIOVASCULAR SYSTEM DRUGS [Concomitant]
  6. CARDIAC THERAPY [Concomitant]
  7. FLUNITRAZEPAM [Concomitant]
     Dosage: DAILY DOSE:2MG-TEXT:EVERY EVENING

REACTIONS (7)
  - CARPAL TUNNEL SYNDROME [None]
  - FEAR OF DEATH [None]
  - HALLUCINATION [None]
  - NIGHTMARE [None]
  - PANIC REACTION [None]
  - TACHYCARDIA [None]
  - VOMITING [None]
